FAERS Safety Report 6466963-8 (Version None)
Quarter: 2009Q4

REPORT INFORMATION
  Report Type: 
  Country: None (occurrence: None)
  Receive Date: 20091202
  Receipt Date: 20091120
  Transmission Date: 20100525
  Serious: Yes (Death, Hospitalization)
  Sender: FDA-Public Use
  Company Number: FR-ELI_LILLY_AND_COMPANY-FR200910002006

PATIENT
  Age: 66 Year
  Sex: Female
  Weight: 76 kg

DRUGS (6)
  1. CYMBALTA [Suspect]
     Indication: DEPRESSION
     Dosage: 60 MG, DAILY (1/D)
     Route: 048
     Dates: start: 20090728, end: 20090917
  2. LEXOMIL [Concomitant]
     Indication: ANXIETY
     Route: 048
  3. MEPRONIZINE [Concomitant]
     Indication: INSOMNIA
     Route: 048
  4. SINGULAIR [Concomitant]
     Indication: ASTHMA
  5. CORTISONE [Concomitant]
     Indication: ADDISON'S DISEASE
     Dosage: UNK, UNKNOWN
  6. CORTANCYL [Concomitant]
     Indication: ADDISON'S DISEASE
     Dosage: UNK, UNKNOWN

REACTIONS (3)
  - ADRENOCORTICAL INSUFFICIENCY ACUTE [None]
  - CARDIOPULMONARY FAILURE [None]
  - PNEUMONIA ASPIRATION [None]
